FAERS Safety Report 9580803 (Version 2)
Quarter: 2013Q4

REPORT INFORMATION
  Report Type: Spontaneous
  Country: NZ (occurrence: NZ)
  Receive Date: 20131002
  Receipt Date: 20131107
  Transmission Date: 20140711
  Serious: Yes (Hospitalization, Other)
  Sender: FDA-Public Use
  Company Number: NZ-PFIZER INC-2013280119

PATIENT
  Sex: Female

DRUGS (2)
  1. EFEXOR XR [Suspect]
     Dosage: 37.5 MG, UNK
  2. OLANZAPINE [Suspect]
     Dosage: UNK

REACTIONS (4)
  - Cardiac failure [Unknown]
  - Depression [Unknown]
  - Drug withdrawal syndrome [Unknown]
  - Feeling abnormal [Unknown]
